FAERS Safety Report 4688877-6 (Version None)
Quarter: 2005Q2

REPORT INFORMATION
  Report Type: 
  Country: None (occurrence: None)
  Receive Date: 20050613
  Receipt Date: 20050527
  Transmission Date: 20051028
  Serious: Yes (Other)
  Sender: FDA-Public Use
  Company Number: DE-JNJFOC-20050507102

PATIENT
  Sex: Female

DRUGS (7)
  1. SEMPERA [Suspect]
     Indication: PHAEHYPHOMYCOSIS
     Route: 042
     Dates: start: 20040901, end: 20041101
  2. MARCUMAR [Suspect]
     Indication: ATRIAL FIBRILLATION
     Route: 065
  3. ATACAND [Concomitant]
     Route: 065
  4. NEBILET [Concomitant]
     Route: 065
  5. DIGIMERCK [Concomitant]
     Route: 065
  6. LOPERIMIDE [Concomitant]
     Route: 065
  7. CIPROFLOXACIN [Concomitant]
     Route: 065

REACTIONS (2)
  - HEPATIC NECROSIS [None]
  - HEPATOTOXICITY [None]
